FAERS Safety Report 12599137 (Version 1)
Quarter: 2016Q3

REPORT INFORMATION
  Report Type: Spontaneous
  Country: US (occurrence: US)
  Receive Date: 20160727
  Receipt Date: 20160727
  Transmission Date: 20161109
  Serious: Yes (Other)
  Sender: FDA-Public Use
  Company Number: US-SA-2016SA037814

PATIENT
  Sex: Female

DRUGS (1)
  1. AMBIEN CR [Suspect]
     Active Substance: ZOLPIDEM TARTRATE
     Dosage: EXTENDED RELEASE?STRENGTH 6.25 MG
     Route: 048

REACTIONS (2)
  - Drug dependence [Unknown]
  - Drug ineffective [Unknown]
